FAERS Safety Report 22625093 (Version 2)
Quarter: 2023Q2

REPORT INFORMATION
  Report Type: Spontaneous
  Country: IT (occurrence: IT)
  Receive Date: 20230621
  Receipt Date: 20230628
  Transmission Date: 20230722
  Serious: Yes (Hospitalization, Other)
  Sender: FDA-Public Use
  Company Number: None

PATIENT
  Age: 72 Year
  Sex: Male

DRUGS (5)
  1. DOXORUBICIN HYDROCHLORIDE [Suspect]
     Active Substance: DOXORUBICIN HYDROCHLORIDE
     Indication: Osteosarcoma
     Dosage: THE CYCLE IS SUSPENDED AT THE MOMENT OF THE REACTION, ADMINISTERING A TOTAL OF 262 ML IN 6 HOURS
     Route: 042
     Dates: start: 20230610, end: 20230610
  2. CISPLATIN [Concomitant]
     Active Substance: CISPLATIN
     Indication: Osteosarcoma
     Dosage: UNK
  3. COSOPT [Concomitant]
     Active Substance: DORZOLAMIDE HYDROCHLORIDE\TIMOLOL MALEATE
     Indication: Glaucoma
     Dosage: UNK
  4. BIMATOPROST\TIMOLOL [Concomitant]
     Active Substance: BIMATOPROST\TIMOLOL
     Indication: Glaucoma
     Dosage: UNK
  5. LASIX [Concomitant]
     Active Substance: FUROSEMIDE
     Dosage: 20 MG, CYCLIC

REACTIONS (5)
  - Tachyarrhythmia [Recovering/Resolving]
  - Chest discomfort [Recovering/Resolving]
  - Atrial fibrillation [Recovering/Resolving]
  - Hyperhidrosis [Recovering/Resolving]
  - ECG signs of myocardial infarction [Recovering/Resolving]

NARRATIVE: CASE EVENT DATE: 20230610
